FAERS Safety Report 5627266-4 (Version None)
Quarter: 2008Q1

REPORT INFORMATION
  Report Type: 
  Country: None (occurrence: None)
  Receive Date: 20080129
  Receipt Date: 20070129
  Transmission Date: 20080703
  Serious: Yes (Death)
  Sender: FDA-Public Use
  Company Number: 8021997

PATIENT
  Age: 14 Year
  Sex: Female
  Weight: 84 kg

DRUGS (2)
  1. KEPPRA [Suspect]
  2. KEPPRA [Suspect]

REACTIONS (2)
  - COMPLETED SUICIDE [None]
  - CONVULSION [None]
